FAERS Safety Report 24734581 (Version 1)
Quarter: 2024Q4

REPORT INFORMATION
  Report Type: Spontaneous
  Country: US (occurrence: US)
  Receive Date: 20241214
  Receipt Date: 20241214
  Transmission Date: 20250114
  Serious: Yes (Death, Other)
  Sender: AMGEN
  Company Number: US-AMGEN-USASP2024242951

PATIENT
  Age: 69 Year
  Sex: Male

DRUGS (6)
  1. PREDNISONE [Suspect]
     Active Substance: PREDNISONE
     Indication: Hypoglycaemia
     Dosage: 30 MILLIGRAM, QD
     Route: 065
  2. CABOZANTINIB [Concomitant]
     Active Substance: CABOZANTINIB
     Indication: Metastatic renal cell carcinoma
  3. LENVATINIB [Concomitant]
     Active Substance: LENVATINIB
     Indication: Metastatic renal cell carcinoma
  4. EVEROLIMUS [Concomitant]
     Active Substance: EVEROLIMUS
     Indication: Metastatic renal cell carcinoma
  5. LEVOTHYROXINE [Concomitant]
     Active Substance: LEVOTHYROXINE
     Indication: Primary hypothyroidism
  6. DEXTROSE [Concomitant]
     Active Substance: DEXTROSE MONOHYDRATE
     Indication: Hypoglycaemia
     Dosage: UNK
     Route: 040

REACTIONS (4)
  - Death [Fatal]
  - Unevaluable event [Unknown]
  - Drug effective for unapproved indication [Unknown]
  - Off label use [Unknown]
